FAERS Safety Report 5289551-8 (Version None)
Quarter: 2007Q1

REPORT INFORMATION
  Report Type: 
  Country: None (occurrence: None)
  Receive Date: 20070118
  Receipt Date: 20060929
  Transmission Date: 20070707
  Serious: Yes (Other)
  Sender: FDA-Public Use
  Company Number: HQWYE644113SEP06

PATIENT
  Age: 84 Year
  Sex: Female
  Weight: 59.02 kg

DRUGS (5)
  1. ADVIL PM [Suspect]
     Indication: INSOMNIA
     Dosage: 2 TABLET 1X PER 1 DAY, ORAL
     Route: 048
     Dates: start: 20060906, end: 20060907
  2. ADVIL PM [Suspect]
     Indication: PAIN
     Dosage: 2 TABLET 1X PER 1 DAY, ORAL
     Route: 048
     Dates: start: 20060906, end: 20060907
  3. FEMARA [Concomitant]
  4. NORVASC [Concomitant]
  5. THEOPHYLLINE [Concomitant]

REACTIONS (1)
  - DRUG INEFFECTIVE [None]
